FAERS Safety Report 7383101-8 (Version None)
Quarter: 2011Q1

REPORT INFORMATION
  Report Type: 
  Country: None (occurrence: None)
  Receive Date: 20110328
  Receipt Date: 20110328
  Transmission Date: 20110831
  Serious: Yes (Hospitalization)
  Sender: FDA-Public Use
  Company Number: None

PATIENT
  Age: 59 Year
  Sex: Male
  Weight: 86.1834 kg

DRUGS (1)
  1. SALONPAS [Suspect]
     Dosage: PATCH ONCE A DAY TOP
     Route: 061
     Dates: start: 20101110, end: 20101124

REACTIONS (3)
  - BACTERIAL INFECTION [None]
  - CHEMICAL INJURY [None]
  - RASH [None]
